FAERS Safety Report 20553545 (Version 2)
Quarter: 2022Q1

REPORT INFORMATION
  Report Type: Report from Study
  Country: US (occurrence: US)
  Receive Date: 20220304
  Receipt Date: 20220308
  Transmission Date: 20220423
  Serious: Yes (Hospitalization)
  Sender: FDA-Public Use
  Company Number: US-EXELIXIS-XL18422049457

PATIENT

DRUGS (3)
  1. CABOZANTINIB [Suspect]
     Active Substance: CABOZANTINIB
     Indication: Uterine leiomyosarcoma
     Dosage: 40 MG, QD
     Route: 048
     Dates: start: 20220203, end: 20220222
  2. IPILIMUMAB [Suspect]
     Active Substance: IPILIMUMAB
     Indication: Uterine leiomyosarcoma
     Dosage: 1 MG/KG, Q3WEEKS
     Route: 042
     Dates: start: 20220203, end: 20220222
  3. NIVOLUMAB [Suspect]
     Active Substance: NIVOLUMAB
     Indication: Uterine leiomyosarcoma
     Dosage: 3 MG/KG, Q3WEEKS
     Route: 042
     Dates: start: 20220203, end: 20220222

REACTIONS (1)
  - Pneumothorax [Recovered/Resolved]

NARRATIVE: CASE EVENT DATE: 20220224
